FAERS Safety Report 8557191-0 (Version None)
Quarter: 2012Q3

REPORT INFORMATION
  Report Type: 
  Country: None (occurrence: None)
  Receive Date: 20120801
  Receipt Date: 20120724
  Transmission Date: 20120928
  Serious: Yes (Hospitalization, Other)
  Sender: FDA-Public Use
  Company Number: PHHY2011US25106

PATIENT
  Sex: Male

DRUGS (13)
  1. PREDNISONE [Concomitant]
     Dosage: 50 MG, QD
  2. LOVENOX [Concomitant]
     Dosage: 70 MG, Q12H
     Route: 058
  3. DABIGATRAN [Concomitant]
     Dosage: 150 MG, QD
  4. PEPCID [Concomitant]
     Dosage: 20 MG, UNK
  5. LISINOPRIL [Concomitant]
     Dosage: 40 MG, QD
  6. COUMADIN [Concomitant]
     Dosage: 5 MG, QD
  7. BACLOFEN [Concomitant]
     Indication: MUSCLE SPASTICITY
     Dosage: 20 MG, QID
  8. NORCO [Concomitant]
  9. GILENYA [Suspect]
     Indication: MULTIPLE SCLEROSIS
     Dosage: 0.5 MG, QD
     Route: 048
     Dates: start: 20110309, end: 20110420
  10. GILENYA [Suspect]
     Dosage: 0.5 MG, DAILY
     Route: 048
     Dates: end: 20120101
  11. HYDROCODONE [Concomitant]
     Indication: PAIN IN EXTREMITY
  12. SOLU-MEDROL [Concomitant]
     Dosage: 1000 MG, QD
  13. AMLODIPINE [Concomitant]
     Dosage: 5 MG, QD

REACTIONS (28)
  - ARTHROPATHY [None]
  - PHOTOPHOBIA [None]
  - DEEP VEIN THROMBOSIS [None]
  - OEDEMA PERIPHERAL [None]
  - BRACHIAL PLEXOPATHY [None]
  - CENTRAL NERVOUS SYSTEM LESION [None]
  - HIATUS HERNIA [None]
  - VISION BLURRED [None]
  - MOBILITY DECREASED [None]
  - HAEMATOCRIT DECREASED [None]
  - LYMPHOCYTE COUNT DECREASED [None]
  - MUSCLE SPASTICITY [None]
  - RED BLOOD CELL COUNT DECREASED [None]
  - HYPERTENSION [None]
  - VERTEBRAL FORAMINAL STENOSIS [None]
  - MEAN CELL HAEMOGLOBIN CONCENTRATION INCREASED [None]
  - MUSCULAR WEAKNESS [None]
  - CELLULITIS [None]
  - NEUROPATHY PERIPHERAL [None]
  - EOSINOPHIL COUNT DECREASED [None]
  - DEMYELINATION [None]
  - ASTHENIA [None]
  - INTERVERTEBRAL DISC PROTRUSION [None]
  - MULTIPLE SCLEROSIS RELAPSE [None]
  - INTERVERTEBRAL DISC DEGENERATION [None]
  - CERVICAL SPINAL STENOSIS [None]
  - HAEMOGLOBIN DECREASED [None]
  - MEAN CELL VOLUME INCREASED [None]
